FAERS Safety Report 10044494 (Version 2)
Quarter: 2014Q2

REPORT INFORMATION
  Report Type: Spontaneous
  Country: US (occurrence: US)
  Receive Date: 20140328
  Receipt Date: 20140423
  Transmission Date: 20141212
  Serious: No
  Sender: FDA-Public Use
  Company Number: US-PFIZER INC-2014088237

PATIENT
  Age: 46 Year
  Sex: Female
  Weight: 122.45 kg

DRUGS (9)
  1. XELJANZ [Suspect]
     Indication: RHEUMATOID ARTHRITIS
     Dosage: 5 MG, 2X/DAY
     Route: 048
     Dates: start: 20131028, end: 20140211
  2. LYRICA [Concomitant]
     Dosage: UNK
  3. LINEZOLID [Concomitant]
     Dosage: UNK
  4. OMEPRAZOLE [Concomitant]
     Dosage: UNK
  5. LIVALO [Concomitant]
     Dosage: UNK
  6. TERBINAFINE [Concomitant]
     Dosage: UNK
  7. VIIBRYD [Concomitant]
     Dosage: UNK
  8. BUPROPION [Concomitant]
     Dosage: UNK
  9. ZOLPIDEM [Concomitant]
     Dosage: UNK

REACTIONS (1)
  - Drug ineffective [Unknown]
